FAERS Safety Report 5840164-6 (Version None)
Quarter: 2008Q3

REPORT INFORMATION
  Report Type: 
  Country: None (occurrence: None)
  Receive Date: 20080807
  Receipt Date: 20080807
  Transmission Date: 20090109
  Serious: Yes (Life-Threatening, Hospitalization)
  Sender: FDA-Public Use
  Company Number: None

PATIENT
  Age: 73 Year
  Sex: Female
  Weight: 64 kg

DRUGS (2)
  1. PHENYTOIN [Suspect]
     Indication: CONVULSION
     Dosage: 50MG IN AM 100MG IN PM
     Dates: start: 20080611, end: 20080715
  2. PHENYTOIN [Suspect]
     Indication: METASTASES TO CENTRAL NERVOUS SYSTEM
     Dosage: 50MG IN AM 100MG IN PM
     Dates: start: 20080611, end: 20080715

REACTIONS (3)
  - AURICULAR SWELLING [None]
  - GASTROINTESTINAL DISORDER [None]
  - STEVENS-JOHNSON SYNDROME [None]
